FAERS Safety Report 14683919 (Version 4)
Quarter: 2018Q3

REPORT INFORMATION
  Report Type: Spontaneous
  Country: BR (occurrence: BR)
  Receive Date: 20180327
  Receipt Date: 20180717
  Transmission Date: 20181010
  Serious: Yes (Death, Life-Threatening, Hospitalization, Other)
  Sender: FDA-Public Use
  Company Number: BR-ROCHE-2094930

PATIENT
  Age: 88 Year
  Sex: Male

DRUGS (1)
  1. RIVOTRIL [Suspect]
     Active Substance: CLONAZEPAM
     Indication: PRODUCT USED FOR UNKNOWN INDICATION
     Dosage: FORM STRENGTH: 2.5MG/ML?6 DROPS AT NIGHT
     Route: 065

REACTIONS (8)
  - Cognitive disorder [Unknown]
  - Overdose [Unknown]
  - Feeling of relaxation [Unknown]
  - Loss of consciousness [Unknown]
  - Heart rate decreased [Unknown]
  - Accidental overdose [Unknown]
  - Cerebrovascular accident [Fatal]
  - Coma [Unknown]

NARRATIVE: CASE EVENT DATE: 201710
